FAERS Safety Report 5276506-2 (Version None)
Quarter: 2007Q1

REPORT INFORMATION
  Report Type: 
  Country: None (occurrence: None)
  Receive Date: 20070327
  Receipt Date: 20070316
  Transmission Date: 20070707
  Serious: Yes (Hospitalization)
  Sender: FDA-Public Use
  Company Number: DEWYE060116MAR07

PATIENT
  Sex: Male

DRUGS (6)
  1. VENLAFAXINE HCL [Interacting]
     Indication: DEPRESSION
     Dosage: 75 MG PER DAY
     Dates: start: 20020101, end: 20061121
  2. VENLAFAXINE HCL [Interacting]
     Dosage: 150 MG PER DAY
     Route: 048
     Dates: start: 20061122, end: 20061128
  3. MELPERONE [Interacting]
     Dosage: 25 MG PER DAY
     Route: 048
  4. OMNIC [Concomitant]
     Dosage: 0.4 MG PER DAY
     Route: 048
  5. MIRTAZAPINE [Suspect]
     Dosage: 30 MG PER DAY
     Route: 048
     Dates: end: 20061126
  6. MIRTAZAPINE [Suspect]
     Dosage: 15 MG PER DAY
     Route: 048
     Dates: start: 20061127, end: 20061128

REACTIONS (3)
  - CONDITION AGGRAVATED [None]
  - DRUG INTERACTION [None]
  - THROMBOCYTOPENIA [None]
